FAERS Safety Report 16562651 (Version 1)
Quarter: 2019Q3

REPORT INFORMATION
  Report Type: Spontaneous
  Country: DE (occurrence: DE)
  Receive Date: 20190711
  Receipt Date: 20190711
  Transmission Date: 20191004
  Serious: Yes (Death)
  Sender: FDA-Public Use
  Company Number: DE-PFIZER INC-2019297160

PATIENT
  Sex: Male

DRUGS (2)
  1. SUNITINIB MALATE. [Suspect]
     Active Substance: SUNITINIB MALATE
     Indication: METASTATIC RENAL CELL CARCINOMA
     Dosage: UNK 1ST, CYCLIC
  2. SUNITINIB MALATE. [Suspect]
     Active Substance: SUNITINIB MALATE
     Dosage: SCHEME 2: 1 CYCLE

REACTIONS (11)
  - Fatigue [Unknown]
  - Sciatica [Unknown]
  - Decreased appetite [Unknown]
  - Back pain [Unknown]
  - Mucosal inflammation [Unknown]
  - Blood pressure fluctuation [Unknown]
  - Death [Fatal]
  - Asthenia [Unknown]
  - Dysgeusia [Unknown]
  - Condition aggravated [Unknown]
  - Stomatitis [Unknown]
